FAERS Safety Report 5233886-1 (Version None)
Quarter: 2007Q1

REPORT INFORMATION
  Report Type: 
  Country: None (occurrence: None)
  Receive Date: 20070208
  Receipt Date: 20070129
  Transmission Date: 20070707
  Serious: Yes (Other)
  Sender: FDA-Public Use
  Company Number: NLWYE380227JUL06

PATIENT
  Sex: Male
  Weight: 10 kg

DRUGS (4)
  1. REFACTO [Suspect]
     Indication: FACTOR VIII DEFICIENCY
     Route: 042
     Dates: start: 20060701, end: 20060701
  2. REFACTO [Suspect]
     Dosage: 500 + 250 IU PRE-OPERATIVE
     Route: 042
     Dates: start: 20060706, end: 20060706
  3. REFACTO [Suspect]
     Dosage: 500 IU/12 HOURS
     Route: 042
     Dates: start: 20060706, end: 20060706
  4. REFACTO [Suspect]
     Dosage: 750 IU/12 HOURS
     Route: 042
     Dates: start: 20060706, end: 20060717

REACTIONS (1)
  - FACTOR VIII INHIBITION [None]
